FAERS Safety Report 5268032-1 (Version None)
Quarter: 2007Q1

REPORT INFORMATION
  Report Type: 
  Country: None (occurrence: None)
  Receive Date: 20070319
  Receipt Date: 20070307
  Transmission Date: 20070707
  Serious: Yes (Other)
  Sender: FDA-Public Use
  Company Number: PHEH2007US02813

PATIENT
  Age: 63 Year
  Sex: Male

DRUGS (1)
  1. AREDIA [Suspect]
     Indication: METASTASES TO BONE
     Dosage: 90MG  QMOS
     Dates: start: 20050901, end: 20051201

REACTIONS (2)
  - BLINDNESS [None]
  - OPTIC ISCHAEMIC NEUROPATHY [None]
